FAERS Safety Report 4600315-8 (Version None)
Quarter: 2005Q1

REPORT INFORMATION
  Report Type: 
  Country: None (occurrence: None)
  Receive Date: 20050303
  Receipt Date: 20050215
  Transmission Date: 20050727
  Serious: Yes (Death, Hospitalization)
  Sender: FDA-Public Use
  Company Number: EWC020330272

PATIENT
  Age: 54 Year
  Sex: Male
  Weight: 54 kg

DRUGS (3)
  1. GEMCITABINE HYDROCHLORIDE-IV (GEMCITABINE) [Suspect]
     Indication: NEOPLASM MALIGNANT
     Dosage: 1550 MG
     Dates: start: 20011004, end: 20020222
  2. CISPLATIN [Suspect]
     Indication: NEOPLASM MALIGNANT
     Dosage: 108.5 MG
     Dates: start: 20011005, end: 20020126
  3. LISINOPRIL [Concomitant]

REACTIONS (14)
  - ASCITES [None]
  - COMA [None]
  - DISEASE PROGRESSION [None]
  - ESCHERICHIA BACTERAEMIA [None]
  - HEPATITIS B POSITIVE [None]
  - HYPERAMMONAEMIA [None]
  - HYPERPROTEINAEMIA [None]
  - METABOLIC ACIDOSIS [None]
  - METASTASES TO LIVER [None]
  - METASTATIC NEOPLASM [None]
  - NEPHROPATHY TOXIC [None]
  - OEDEMA PERIPHERAL [None]
  - OESOPHAGEAL VARICES HAEMORRHAGE [None]
  - RENAL FAILURE ACUTE [None]
